FAERS Safety Report 11787929 (Version 4)
Quarter: 2016Q1

REPORT INFORMATION
  Report Type: Spontaneous
  Country: DE (occurrence: DE)
  Receive Date: 20151130
  Receipt Date: 20160127
  Transmission Date: 20160525
  Serious: Yes (Other)
  Sender: FDA-Public Use
  Company Number: DE-BRISTOL-MYERS SQUIBB COMPANY-BMS-2015-081398

PATIENT
  Age: 76 Year
  Sex: Male
  Weight: 79.5 kg

DRUGS (2)
  1. NIVOLUMAB [Suspect]
     Active Substance: NIVOLUMAB
     Indication: MALIGNANT MELANOMA
     Dosage: UNK
     Route: 065
  2. NIVOLUMAB [Suspect]
     Active Substance: NIVOLUMAB
     Dosage: 246 MG, UNK
     Route: 065
     Dates: start: 20151217

REACTIONS (3)
  - Hypopituitarism [Not Recovered/Not Resolved]
  - Breath odour [Unknown]
  - Hypophysitis [Not Recovered/Not Resolved]
